FAERS Safety Report 23011580 (Version 3)
Quarter: 2023Q4

REPORT INFORMATION
  Report Type: Spontaneous
  Country: US (occurrence: US)
  Receive Date: 20230929
  Receipt Date: 20231118
  Transmission Date: 20240109
  Serious: No
  Sender: FDA-Public Use
  Company Number: US-SA-SAC20230925001102

PATIENT
  Age: 53 Year
  Sex: Female

DRUGS (11)
  1. KEVZARA [Suspect]
     Active Substance: SARILUMAB
     Indication: Rheumatoid arthritis
     Dosage: 200 MG, QOW
     Route: 058
  2. VITAMIN D3 [Concomitant]
     Active Substance: CHOLECALCIFEROL
     Dosage: 1000 IU
  3. AMLODIPINE [Concomitant]
     Active Substance: AMLODIPINE BESYLATE
     Dosage: UNK
  4. CELEBREX [Concomitant]
     Active Substance: CELECOXIB
     Dosage: UNK
  5. EFFEXOR [Concomitant]
     Active Substance: VENLAFAXINE HYDROCHLORIDE
     Dosage: UNK
  6. FOLIC ACID [Concomitant]
     Active Substance: FOLIC ACID
     Dosage: UNK
  7. HYZAAR [Concomitant]
     Active Substance: HYDROCHLOROTHIAZIDE\LOSARTAN POTASSIUM
     Dosage: UNK
  8. METHOTREXATE [Concomitant]
     Active Substance: METHOTREXATE
     Dosage: UNK
  9. PREDNISONE [Concomitant]
     Active Substance: PREDNISONE
     Dosage: UNK
  10. PREGABALIN [Concomitant]
     Active Substance: PREGABALIN
     Dosage: UNK
  11. TIZANIDINE [Concomitant]
     Active Substance: TIZANIDINE
     Dosage: UNK

REACTIONS (8)
  - Road traffic accident [Unknown]
  - Gait inability [Unknown]
  - Asthenia [Unknown]
  - Bone pain [Unknown]
  - Mobility decreased [Unknown]
  - Arthralgia [Not Recovered/Not Resolved]
  - Psoriasis [Not Recovered/Not Resolved]
  - Drug ineffective [Unknown]
